FAERS Safety Report 15123891 (Version 1)
Quarter: 2018Q3

REPORT INFORMATION
  Report Type: Spontaneous
  Country: IR (occurrence: IR)
  Receive Date: 20180710
  Receipt Date: 20180710
  Transmission Date: 20181010
  Serious: Yes (Other)
  Sender: FDA-Public Use
  Company Number: IR-RICON PHARMA, LLC-RIC201806-000657

PATIENT
  Age: 61 Year
  Sex: Female

DRUGS (3)
  1. PHENYLEPHRINE [Concomitant]
     Active Substance: PHENYLEPHRINE\PHENYLEPHRINE HYDROCHLORIDE
  2. LIDOCAINE. [Suspect]
     Active Substance: LIDOCAINE
     Route: 061
  3. HOMATROPINE [Concomitant]
     Active Substance: HOMATROPINE\HOMATROPINE HYDROBROMIDE

REACTIONS (3)
  - Cystoid macular oedema [Recovered/Resolved]
  - Blindness transient [Recovered/Resolved]
  - Retinal toxicity [Recovered/Resolved]
